FAERS Safety Report 9507337 (Version 1)
Quarter: 2013Q1

REPORT INFORMATION
  Report Type: Spontaneous
  Country: US (occurrence: None)
  Receive Date: 20130305
  Receipt Date: 20130305
  Transmission Date: 20140127
  Serious: No
  Sender: FDA-Public Use
  Company Number: 163-21880-10011124

PATIENT
  Age: 70 Year
  Sex: Male

DRUGS (12)
  1. REVLIMID [Suspect]
     Indication: PLASMA CELL MYELOMA
     Route: 048
     Dates: start: 20070424
  2. PROSCAR (FINASTERIDE) (UNKNOWN) [Concomitant]
  3. SYNTHROID (LEVOTHYROXINE) SODIUM) (UNKNOWN) [Concomitant]
  4. GABPENTIN (GABAPENTIN) (UNKNOWN) [Concomitant]
  5. CASODEX (BICALUTAMIDE) (UNKNOWN) [Concomitant]
  6. ASPIRIIN (UNKNOWN) [Concomitant]
  7. PERCOCET (OXYCET) (UNKNOWN) [Concomitant]
  8. LUPRON (LEUPROELIN ACETATE) (UNKNOWN) [Concomitant]
  9. ZOMETA (ZOLDRONIC ACID) (UNKNOWN) [Concomitant]
  10. NOVOLOG (INSULIN ASPART) (UNKNOWN) [Concomitant]
  11. CALCIUM (CALCIUM) (UNKNWON) [Concomitant]
  12. VITAMIN D (ERGOCALCIFEROL) (UNKNOWN) [Concomitant]

REACTIONS (7)
  - Hypotension [None]
  - Heart rate decreased [None]
  - Fatigue [None]
  - Vertigo [None]
  - Dizziness [None]
  - Rash [None]
  - Constipation [None]
